FAERS Safety Report 21691542 (Version 3)
Quarter: 2023Q1

REPORT INFORMATION
  Report Type: Other
  Country: CA (occurrence: None)
  Receive Date: 20221207
  Receipt Date: 20230202
  Transmission Date: 20230418
  Serious: Yes (Hospitalization, Other)
  Sender: FDA-Public Use
  Company Number: CA-ROCHE-2098170

PATIENT
  Age: 48 Year
  Sex: Female

DRUGS (11)
  1. OCREVUS [Suspect]
     Active Substance: OCRELIZUMAB
     Indication: Relapsing-remitting multiple sclerosis
     Dosage: DAY 0 + DAY 14 THEN 600 MG Q 6 MONTHS
     Route: 042
     Dates: start: 20180326
  2. OCREVUS [Suspect]
     Active Substance: OCRELIZUMAB
     Dosage: 30 MG/ML, AT DAY 14, THEN 600 MG EVERY 6 MONTH?SUBSEQUENT DOSE ON 31/OCT/2018.
     Route: 042
     Dates: start: 20180409
  3. CYMBALTA [Concomitant]
     Active Substance: DULOXETINE HYDROCHLORIDE
     Indication: Pain
     Route: 048
     Dates: start: 2017
  4. VESICARE [Concomitant]
     Active Substance: SOLIFENACIN SUCCINATE
     Route: 048
     Dates: start: 2017
  5. ELAVIL [Concomitant]
     Active Substance: AMITRIPTYLINE HYDROCHLORIDE
     Indication: Pain
     Route: 048
     Dates: start: 2015
  6. ELAVIL [Concomitant]
     Active Substance: AMITRIPTYLINE HYDROCHLORIDE
     Dosage: 25 MG TWO AT NIGHT
     Route: 048
     Dates: start: 2017
  7. ELAVIL [Concomitant]
     Active Substance: AMITRIPTYLINE HYDROCHLORIDE
  8. LYRICA [Concomitant]
     Active Substance: PREGABALIN
     Indication: Pain
     Dosage: 75 MG 5 IN THE MORNING AND ONE AT NIGHT?INCREASED TO 7 TIMES OF THE 75 MG A DAY (SINCE 4 MONTHS, JUS
     Route: 048
     Dates: start: 2016
  9. CANNABIS SATIVA SUBSP. INDICA TOP [Concomitant]
     Active Substance: CANNABIS SATIVA SUBSP. INDICA TOP
     Indication: Pain
     Dates: start: 2017
  10. LIDOCAINE [Concomitant]
     Active Substance: LIDOCAINE
     Indication: Pain
  11. CALCIUM [Concomitant]
     Active Substance: CALCIUM

REACTIONS (20)
  - Pulmonary embolism [Recovered/Resolved]
  - Memory impairment [Not Recovered/Not Resolved]
  - Arthritis [Not Recovered/Not Resolved]
  - Cartilage atrophy [Not Recovered/Not Resolved]
  - Spinal stenosis [Not Recovered/Not Resolved]
  - Intervertebral disc protrusion [Not Recovered/Not Resolved]
  - Mobility decreased [Not Recovered/Not Resolved]
  - Pain in extremity [Not Recovered/Not Resolved]
  - Fatigue [Not Recovered/Not Resolved]
  - Arthropathy [Not Recovered/Not Resolved]
  - Hypersensitivity [Not Recovered/Not Resolved]
  - Infusion related reaction [Unknown]
  - Malaise [Not Recovered/Not Resolved]
  - Infusion related reaction [Not Recovered/Not Resolved]
  - Feeling abnormal [Unknown]
  - Ear pain [Not Recovered/Not Resolved]
  - COVID-19 [Recovering/Resolving]
  - COVID-19 [Recovered/Resolved]
  - Blood immunoglobulin M decreased [Unknown]
  - Chromaturia [Unknown]

NARRATIVE: CASE EVENT DATE: 20180326
